FAERS Safety Report 5763378-2 (Version None)
Quarter: 2008Q2

REPORT INFORMATION
  Report Type: 
  Country: None (occurrence: None)
  Receive Date: 20080609
  Receipt Date: 20080606
  Transmission Date: 20081010
  Serious: Yes (Hospitalization, Other)
  Sender: FDA-Public Use
  Company Number: GB-BOEHRINGER INGELHEIM GMBH, GERMANY-2008-DE-03184GD

PATIENT
  Sex: Female

DRUGS (4)
  1. PRAMIPEXOLE DIHYDROCHLORIDE [Suspect]
     Indication: PARKINSON'S DISEASE
  2. PRAMIPEXOLE DIHYDROCHLORIDE [Suspect]
     Dosage: AT A LOWER DOSE THAN DURING HER FIRST TREATMENT PERIOD
  3. ACETAMINOPHEN [Suspect]
  4. L-DOPA [Suspect]
     Indication: PARKINSON'S DISEASE

REACTIONS (8)
  - DELUSIONAL DISORDER, PERSECUTORY TYPE [None]
  - DEPRESSION [None]
  - HYPOTHYROIDISM [None]
  - IMPULSE-CONTROL DISORDER [None]
  - INTENTIONAL OVERDOSE [None]
  - INTENTIONAL SELF-INJURY [None]
  - LOWER RESPIRATORY TRACT INFECTION [None]
  - SOMNOLENCE [None]
